FAERS Safety Report 5761049-X (Version None)
Quarter: 2008Q2

REPORT INFORMATION
  Report Type: 
  Country: None (occurrence: None)
  Receive Date: 20080606
  Receipt Date: 20080103
  Transmission Date: 20081010
  Serious: No
  Sender: FDA-Public Use
  Company Number: US-ASTRAZENECA-2008UW00173

PATIENT
  Age: 59 Year
  Sex: Female
  Weight: 61.2 kg

DRUGS (3)
  1. PRILOSEC [Suspect]
     Indication: STOMACH DISCOMFORT
     Route: 048
  2. ZOLOFT [Concomitant]
  3. HYDROCHLOROTHIAZIDE [Concomitant]

REACTIONS (1)
  - SWOLLEN TONGUE [None]
